FAERS Safety Report 21832432 (Version 3)
Quarter: 2023Q1

REPORT INFORMATION
  Report Type: Spontaneous
  Country: NL (occurrence: NL)
  Receive Date: 20230106
  Receipt Date: 20230124
  Transmission Date: 20230417
  Serious: Yes (Other)
  Sender: FDA-Public Use
  Company Number: NL-VIIV HEALTHCARE ULC-NL2022EME148159

PATIENT
  Age: 31 Year
  Sex: Male
  Weight: 55 kg

DRUGS (3)
  1. RILPIVIRINE [Suspect]
     Active Substance: RILPIVIRINE
     Indication: HIV infection
     Dosage: 900 MG, Z, (2 WEEK INTERVAL) EVERY 2 MONTHS
     Route: 030
     Dates: start: 20220301, end: 20221104
  2. VOCABRIA [Suspect]
     Active Substance: CABOTEGRAVIR SODIUM
     Indication: HIV infection
     Dosage: 3 ML, Z EVEY TWO MONTH
     Route: 030
     Dates: start: 20220310
  3. VOCABRIA [Suspect]
     Active Substance: CABOTEGRAVIR SODIUM
     Dosage: 600MG, Z EVERY TWO MONTH
     Route: 030
     Dates: start: 20220301, end: 20221104

REACTIONS (2)
  - Cutaneous vasculitis [Not Recovered/Not Resolved]
  - Vasculitis [Recovering/Resolving]

NARRATIVE: CASE EVENT DATE: 20220801
